FAERS Safety Report 7447917-1 (Version None)
Quarter: 2011Q2

REPORT INFORMATION
  Report Type: 
  Country: None (occurrence: None)
  Receive Date: 20110429
  Receipt Date: 20110301
  Transmission Date: 20111010
  Serious: No
  Sender: FDA-Public Use
  Company Number: US-ASTRAZENECA-2009SE22535

PATIENT
  Age: 54 Year
  Sex: Female

DRUGS (3)
  1. PRILOSEC [Suspect]
     Route: 048
  2. NEXIUM [Suspect]
     Route: 048
  3. PREVACID [Concomitant]

REACTIONS (6)
  - DYSPEPSIA [None]
  - GASTRIC DISORDER [None]
  - DRUG INEFFECTIVE [None]
  - HERNIA [None]
  - DRUG DOSE OMISSION [None]
  - INSOMNIA [None]
